FAERS Safety Report 18108053 (Version 1)
Quarter: 2020Q3

REPORT INFORMATION
  Report Type: Spontaneous
  Country: US (occurrence: US)
  Receive Date: 20200803
  Receipt Date: 20200803
  Transmission Date: 20201103
  Serious: Yes (Death, Hospitalization, Disabling)
  Sender: FDA-Public Use
  Company Number: US-PURDUE-USA-2020-0159510

PATIENT
  Sex: Male

DRUGS (1)
  1. OXYCONTIN [Suspect]
     Active Substance: OXYCODONE HYDROCHLORIDE
     Indication: HEAD INJURY
     Dosage: UNK
     Route: 048
     Dates: start: 2008

REACTIONS (3)
  - Disability [Unknown]
  - Drug abuse [Unknown]
  - Death [Fatal]

NARRATIVE: CASE EVENT DATE: 2008
